FAERS Safety Report 8618555-X (Version None)
Quarter: 2012Q3

REPORT INFORMATION
  Report Type: 
  Country: None (occurrence: None)
  Receive Date: 20120824
  Receipt Date: 20120821
  Transmission Date: 20120928
  Serious: No
  Sender: FDA-Public Use
  Company Number: US-PFIZER INC-2012190439

PATIENT
  Age: 65 Year
  Sex: Female

DRUGS (1)
  1. INLYTA [Suspect]
     Indication: RENAL CANCER
     Dosage: 5 MG, 2X/DAY
     Route: 048
     Dates: start: 20120327

REACTIONS (6)
  - RENAL CANCER [None]
  - INSOMNIA [None]
  - DECREASED APPETITE [None]
  - CONSTIPATION [None]
  - DISEASE PROGRESSION [None]
  - AGEUSIA [None]
